FAERS Safety Report 7003137-6 (Version None)
Quarter: 2010Q3

REPORT INFORMATION
  Report Type: 
  Country: None (occurrence: None)
  Receive Date: 20100920
  Receipt Date: 20100303
  Transmission Date: 20110219
  Serious: Yes (Other)
  Sender: FDA-Public Use
  Company Number: US-ASTRAZENECA-2009SE33240

PATIENT
  Age: 44 Year
  Sex: Female
  Weight: 108.9 kg

DRUGS (1)
  1. SEROQUEL [Suspect]
     Indication: INSOMNIA
     Route: 048
     Dates: start: 20000101

REACTIONS (2)
  - OBESITY [None]
  - PANCREATITIS [None]
